FAERS Safety Report 21554076 (Version 1)
Quarter: 2022Q4

REPORT INFORMATION
  Report Type: Report from Study
  Country: US (occurrence: US)
  Receive Date: 20221104
  Receipt Date: 20221104
  Transmission Date: 20230113
  Serious: No
  Sender: FDA-Public Use
  Company Number: US-ABBVIE-4153285

PATIENT
  Sex: Female

DRUGS (6)
  1. HUMIRA [Suspect]
     Active Substance: ADALIMUMAB
     Indication: Psoriatic arthropathy
     Dosage: CF
     Route: 058
  2. GABAPENTIN [Concomitant]
     Active Substance: GABAPENTIN
     Indication: Product used for unknown indication
  3. IBUPROFEN 100 JUNIOR STRE CLONIDINE HCL [Concomitant]
     Indication: Product used for unknown indication
  4. FLUXOETINE HCL PANTOPRAZOLE SODIUM [Concomitant]
     Indication: Product used for unknown indication
  5. TYLENOL 8 HOUR FLUOXETINE HCL [Concomitant]
     Indication: Product used for unknown indication
  6. TRAZODONE HCL [Concomitant]
     Active Substance: TRAZODONE HYDROCHLORIDE
     Indication: Product used for unknown indication

REACTIONS (1)
  - Injection site rash [Unknown]
